FAERS Safety Report 6159005-5 (Version None)
Quarter: 2009Q2

REPORT INFORMATION
  Report Type: 
  Country: None (occurrence: None)
  Receive Date: 20090414
  Receipt Date: 20090403
  Transmission Date: 20091009
  Serious: Yes (Other)
  Sender: FDA-Public Use
  Company Number: 230299J08GBR

PATIENT
  Age: 35 Year
  Sex: Female

DRUGS (1)
  1. REBIF [Suspect]
     Dosage: 44 MCG
     Dates: start: 20080115

REACTIONS (4)
  - ABORTION INDUCED [None]
  - DEEP VEIN THROMBOSIS [None]
  - DRUG EXPOSURE DURING PREGNANCY [None]
  - PULMONARY EMBOLISM [None]
